FAERS Safety Report 5083122-4 (Version None)
Quarter: 2006Q3

REPORT INFORMATION
  Report Type: 
  Country: None (occurrence: None)
  Receive Date: 20060720
  Receipt Date: 20060410
  Transmission Date: 20061208
  Serious: Yes (Other)
  Sender: FDA-Public Use
  Company Number: 2006051027

PATIENT
  Sex: 0

DRUGS (2)
  1. CELEBREX [Suspect]
     Indication: ILL-DEFINED DISORDER
     Dosage: UNK (200 MG, 1 IN1 D),
     Dates: start: 20010101
  2. WARFARIN SODIUM [Concomitant]

REACTIONS (1)
  - HAEMATOCHEZIA [None]
